FAERS Safety Report 16091380 (Version 3)
Quarter: 2019Q2

REPORT INFORMATION
  Report Type: Report from Study
  Country: CA (occurrence: CA)
  Receive Date: 20190319
  Receipt Date: 20190408
  Transmission Date: 20190711
  Serious: Yes (Death, Other)
  Sender: FDA-Public Use
  Company Number: CA-ASTELLAS-2018US030927

PATIENT
  Age: 32 Year
  Sex: Male

DRUGS (11)
  1. VORICONAZOLE. [Interacting]
     Active Substance: VORICONAZOLE
     Route: 042
     Dates: start: 20180721, end: 20180724
  2. VORICONAZOLE. [Interacting]
     Active Substance: VORICONAZOLE
     Route: 048
     Dates: start: 20180726, end: 20180817
  3. CUBICIN [Concomitant]
     Active Substance: DAPTOMYCIN
     Indication: STAPHYLOCOCCAL BACTERAEMIA
     Route: 042
     Dates: start: 20180617, end: 20180807
  4. ASP2215 [Suspect]
     Active Substance: GILTERITINIB
     Indication: ACUTE MYELOID LEUKAEMIA
     Route: 048
     Dates: start: 20180622, end: 20180703
  5. MEROPENEM. [Concomitant]
     Active Substance: MEROPENEM
     Indication: STAPHYLOCOCCAL BACTERAEMIA
     Route: 042
     Dates: start: 20180517, end: 20180801
  6. ERAXIS [Concomitant]
     Active Substance: ANIDULAFUNGIN
     Indication: PROPHYLAXIS
     Route: 042
     Dates: start: 20180601
  7. PENTAMIDINE [Concomitant]
     Active Substance: PENTAMIDINE
     Indication: INFECTION PROPHYLAXIS
     Route: 055
     Dates: start: 20180430
  8. ASP2215 [Interacting]
     Active Substance: GILTERITINIB
     Route: 048
     Dates: start: 20180716, end: 20180724
  9. VORICONAZOLE. [Interacting]
     Active Substance: VORICONAZOLE
     Indication: PNEUMONIA
     Route: 042
     Dates: start: 20180720, end: 20180721
  10. VORICONAZOLE. [Interacting]
     Active Substance: VORICONAZOLE
     Route: 048
     Dates: start: 20180724, end: 20180726
  11. MEROPENEM. [Concomitant]
     Active Substance: MEROPENEM
     Route: 042
     Dates: start: 20180802, end: 20180803

REACTIONS (4)
  - Drug interaction [Not Recovered/Not Resolved]
  - Bronchopulmonary aspergillosis [Not Recovered/Not Resolved]
  - Acute kidney injury [Not Recovered/Not Resolved]
  - Bacterial sepsis [Fatal]

NARRATIVE: CASE EVENT DATE: 20180704
